FAERS Safety Report 6360879-3 (Version None)
Quarter: 2009Q3

REPORT INFORMATION
  Report Type: 
  Country: None (occurrence: None)
  Receive Date: 20090918
  Receipt Date: 20090908
  Transmission Date: 20100115
  Serious: Yes (Life-Threatening, Hospitalization)
  Sender: FDA-Public Use
  Company Number: US-KINGPHARMUSA00001-K200900286

PATIENT
  Age: 50 Year
  Sex: Male
  Weight: 77.098 kg

DRUGS (7)
  1. THROMBIN NOS [Suspect]
     Indication: EPISTAXIS
     Dosage: UNK, SINGLE
     Route: 045
     Dates: start: 20090312, end: 20090312
  2. ACETYLSALICYLIC ACID [Concomitant]
     Dosage: 325 MG, QD
     Route: 048
  3. BETA BLOCKING AGENTS [Concomitant]
  4. CHOLESTEROL- AND TRIGLYCERIDE REDUCERS [Concomitant]
  5. MORPHINE [Concomitant]
     Indication: PAIN
  6. MORPHINE [Concomitant]
     Indication: BLOOD PRESSURE INCREASED
  7. NORMODYNE [Concomitant]
     Indication: BLOOD PRESSURE INCREASED

REACTIONS (4)
  - ACUTE MYOCARDIAL INFARCTION [None]
  - CHEST PAIN [None]
  - CORONARY ARTERY REOCCLUSION [None]
  - HAEMORRHAGE [None]
